FAERS Safety Report 7870965-4 (Version None)
Quarter: 2011Q4

REPORT INFORMATION
  Report Type: 
  Country: None (occurrence: None)
  Receive Date: 20111029
  Receipt Date: 20110222
  Transmission Date: 20120403
  Serious: No
  Sender: FDA-Public Use
  Company Number: US-AMGEN-USASP2011010348

PATIENT
  Age: 12 Year
  Sex: Female

DRUGS (1)
  1. ENBREL [Suspect]
     Indication: JUVENILE ARTHRITIS
     Dosage: 12.5 MG, QWK
     Dates: start: 20090801

REACTIONS (7)
  - JUVENILE ARTHRITIS [None]
  - DRY SKIN [None]
  - SKIN PAPILLOMA [None]
  - ERYTHEMA [None]
  - MOLLUSCUM CONTAGIOSUM [None]
  - PRURITUS [None]
  - STAPHYLOCOCCAL INFECTION [None]
